FAERS Safety Report 19954114 (Version 6)
Quarter: 2024Q2

REPORT INFORMATION
  Report Type: Report from Study
  Country: US (occurrence: US)
  Receive Date: 20211013
  Receipt Date: 20240415
  Transmission Date: 20240716
  Serious: Yes (Other)
  Sender: FDA-Public Use
  Company Number: US-PFIZER INC-202101301692

PATIENT
  Age: 61 Year
  Sex: Female

DRUGS (8)
  1. IBRANCE [Suspect]
     Active Substance: PALBOCICLIB
     Indication: Breast cancer female
     Dosage: 125 MG, DAILY
     Route: 048
     Dates: start: 202003
  2. IBRANCE [Suspect]
     Active Substance: PALBOCICLIB
     Dosage: 125 MG, DAILY
     Route: 048
  3. IBRANCE [Suspect]
     Active Substance: PALBOCICLIB
     Dosage: 125 MG, CYCLIC(125MG TABLET BY MOUTH DAILY FOR 21 DAYS ON AND 7 DAYS OFF)
     Route: 048
     Dates: start: 20230330, end: 202306
  4. IBRANCE [Suspect]
     Active Substance: PALBOCICLIB
     Dosage: 125 MG, CYCLIC(125MG TABLET BY MOUTH DAILY FOR 21 DAYS ON AND 7 DAYS OFF)
     Route: 048
     Dates: start: 20230905
  5. IBRANCE [Suspect]
     Active Substance: PALBOCICLIB
     Dosage: 125 MG, CYCLIC (IBRANCE 125MG TABLET BY MOUTH DAILY FOR 21 DAYS ON AND 7 DAYS OFF)
     Route: 048
     Dates: start: 20230905
  6. IBRANCE [Suspect]
     Active Substance: PALBOCICLIB
     Dosage: 125 MG, CYCLIC (IBRANCE 125MG TABLET BY MOUTH DAILY FOR 21 DAYS ON AND 7 DAYS OFF)
     Route: 048
  7. FEMARA [Concomitant]
     Active Substance: LETROZOLE
     Dosage: UNK
  8. LETROZOLE [Concomitant]
     Active Substance: LETROZOLE
     Dosage: UNK, 1X/DAY

REACTIONS (19)
  - Neuropathy peripheral [Not Recovered/Not Resolved]
  - Product dose omission in error [Unknown]
  - Intentional dose omission [Unknown]
  - Dyspnoea [Not Recovered/Not Resolved]
  - Memory impairment [Not Recovered/Not Resolved]
  - Fatigue [Not Recovered/Not Resolved]
  - Limb discomfort [Not Recovered/Not Resolved]
  - Abdominal discomfort [Not Recovered/Not Resolved]
  - Rash [Not Recovered/Not Resolved]
  - Hot flush [Not Recovered/Not Resolved]
  - Contusion [Recovered/Resolved]
  - Hyperaesthesia [Not Recovered/Not Resolved]
  - Headache [Not Recovered/Not Resolved]
  - Insomnia [Unknown]
  - Bone pain [Unknown]
  - Back pain [Unknown]
  - Arthralgia [Unknown]
  - Pain in extremity [Unknown]
  - Gastrointestinal disorder [Not Recovered/Not Resolved]

NARRATIVE: CASE EVENT DATE: 20230901
